FAERS Safety Report 4442180-8 (Version None)
Quarter: 2004Q3

REPORT INFORMATION
  Report Type: 
  Country: None (occurrence: None)
  Receive Date: 20040903
  Receipt Date: 20040723
  Transmission Date: 20050211
  Serious: Yes (Other)
  Sender: FDA-Public Use
  Company Number: 2004UW15696

PATIENT
  Age: 63 Year
  Sex: Female
  Weight: 50.3493 kg

DRUGS (2)
  1. CRESTOR [Suspect]
     Indication: BLOOD CHOLESTEROL INCREASED
     Dosage: 10 MG PO
     Route: 048
     Dates: start: 20040524
  2. MULTIVITAMIN [Concomitant]

REACTIONS (2)
  - ILL-DEFINED DISORDER [None]
  - WEIGHT DECREASED [None]
